FAERS Safety Report 5410766-X (Version None)
Quarter: 2007Q3

REPORT INFORMATION
  Report Type: 
  Country: None (occurrence: None)
  Receive Date: 20070810
  Receipt Date: 20070326
  Transmission Date: 20080115
  Serious: No
  Sender: FDA-Public Use
  Company Number: A0644626A

PATIENT
  Age: 46 Year
  Sex: Male

DRUGS (1)
  1. PAXIL CR [Suspect]
     Indication: ANGER
     Dosage: 10MG PER DAY
     Route: 048
     Dates: start: 19970101, end: 20070101

REACTIONS (2)
  - DIZZINESS [None]
  - DRUG WITHDRAWAL SYNDROME [None]
